FAERS Safety Report 7536084-1 (Version None)
Quarter: 2011Q2

REPORT INFORMATION
  Report Type: 
  Country: None (occurrence: None)
  Receive Date: 20110609
  Receipt Date: 20110526
  Transmission Date: 20111010
  Serious: Yes (Hospitalization)
  Sender: FDA-Public Use
  Company Number: DE-RANBAXY-2009RR-20438

PATIENT
  Age: 70 Year
  Sex: Male
  Weight: 91.5 kg

DRUGS (16)
  1. FLUVASTATIN SODIUM [Concomitant]
     Indication: HYPERCHOLESTEROLAEMIA
     Dosage: 20 MG, QD
     Route: 048
  2. TOREM/GFR [Concomitant]
     Indication: HYPERTENSION
     Dosage: 20 MG, TID
     Route: 048
  3. PLAVIX [Concomitant]
     Indication: CARDIOVASCULAR EVENT PROPHYLAXIS
     Dosage: 75 MG, QD
     Route: 048
     Dates: start: 20060401, end: 20080720
  4. NEORECORMON ROCHE [Concomitant]
     Indication: ANAEMIA
     Dosage: 4000 IU, UNK
     Route: 058
  5. MOXONIDINE [Concomitant]
     Indication: HYPERTENSION
     Dosage: 0.2 MG, TID
     Route: 048
  6. ALLOPURINOL [Concomitant]
     Indication: HYPERURICAEMIA
     Dosage: 50 MG, QD
     Route: 048
  7. EINSALPHA [Concomitant]
     Indication: HYPERPARATHYROIDISM
     Dosage: 0.25 UG, QD
     Route: 048
     Dates: start: 20080520
  8. EBRANTIL [Concomitant]
     Indication: HYPERTENSION
     Dosage: 60 MG, BID
     Route: 048
  9. DIGITOXIN TAB [Suspect]
     Indication: CARDIAC FAILURE
     Dosage: 0.07 MG, QD
     Route: 048
     Dates: start: 20080625, end: 20080720
  10. ACETOLYT [Concomitant]
     Indication: ACIDOSIS
     Dosage: 2.5 G, QD
     Route: 048
     Dates: end: 20080720
  11. ASPIRIN [Concomitant]
     Indication: CARDIOVASCULAR EVENT PROPHYLAXIS
     Dosage: 100 MG, QD
     Route: 048
     Dates: start: 20000101
  12. DIOVANE [Concomitant]
     Indication: HYPERTENSION
     Dosage: 160 MG, QD
     Route: 048
  13. PANTOPRAZOLE [Concomitant]
     Indication: HELICOBACTER GASTRITIS
     Dosage: 40 MG, BID
     Route: 048
  14. METAMIZOLE [Concomitant]
     Indication: OSTEOARTHRITIS
     Dosage: 500 MG, 1/WEEK
     Route: 048
     Dates: start: 19900101
  15. XIPAMIDE [Concomitant]
     Indication: HYPERTENSION
     Dosage: 20 MG, QD
     Route: 048
     Dates: start: 20080625
  16. CARVEDILOL [Suspect]
     Indication: HYPERTENSION
     Dosage: 12.5 MG, QD
     Route: 048

REACTIONS (2)
  - DRUG INTERACTION [None]
  - NAUSEA [None]
